FAERS Safety Report 9650441 (Version 2)
Quarter: 2013Q4

REPORT INFORMATION
  Report Type: Spontaneous
  Country: FI (occurrence: FI)
  Receive Date: 20131028
  Receipt Date: 20131028
  Transmission Date: 20140711
  Serious: Yes (Other)
  Sender: FDA-Public Use
  Company Number: FI-TAKEDA-TPA2013A07574

PATIENT
  Sex: Male

DRUGS (1)
  1. ADENURIC [Suspect]
     Route: 048

REACTIONS (1)
  - Cardiac failure [Unknown]
